APPROVED DRUG PRODUCT: PREDNISOLONE SODIUM PHOSPHATE
Active Ingredient: PREDNISOLONE SODIUM PHOSPHATE
Strength: EQ 30MG BASE/5ML
Dosage Form/Route: SOLUTION;ORAL
Application: A204962 | Product #001
Applicant: PHARMACEUTICAL ASSOCIATES INC
Approved: Mar 11, 2020 | RLD: No | RS: No | Type: DISCN